FAERS Safety Report 9495373 (Version 2)
Quarter: 2014Q1

REPORT INFORMATION
  Report Type: Spontaneous
  Country: JP (occurrence: JP)
  Receive Date: 20130903
  Receipt Date: 20140102
  Transmission Date: 20141002
  Serious: Yes (Hospitalization)
  Sender: FDA-Public Use
  Company Number: JP-GLAXOSMITHKLINE-B0919275A

PATIENT
  Age: 54 Year
  Sex: Female

DRUGS (12)
  1. LAMICTAL [Suspect]
     Indication: BIPOLAR DISORDER
     Route: 048
     Dates: start: 20120416, end: 201204
  2. LAMICTAL [Suspect]
     Indication: BIPOLAR DISORDER
     Route: 048
     Dates: start: 20120428, end: 201204
  3. LAMICTAL [Suspect]
     Indication: BIPOLAR DISORDER
     Route: 048
     Dates: start: 20120501, end: 201205
  4. LAMICTAL [Suspect]
     Indication: BIPOLAR DISORDER
     Route: 048
     Dates: start: 20120511, end: 201205
  5. LAMICTAL [Suspect]
     Indication: BIPOLAR DISORDER
     Route: 048
     Dates: start: 20120525, end: 2012
  6. LAMICTAL [Suspect]
     Indication: BIPOLAR DISORDER
     Route: 048
     Dates: start: 20120608, end: 201206
  7. LAMICTAL [Suspect]
     Indication: BIPOLAR DISORDER
     Route: 048
     Dates: start: 20120622, end: 2012
  8. ZYPREXA [Concomitant]
     Indication: BIPOLAR DISORDER
     Dosage: 5MG PER DAY
     Route: 065
     Dates: start: 201204
  9. FLUNITRAZEPAM [Concomitant]
     Indication: BIPOLAR DISORDER
     Dosage: 2MG PER DAY
     Route: 065
  10. ROZEREM [Concomitant]
     Indication: BIPOLAR DISORDER
     Dosage: 8MG PER DAY
     Route: 048
  11. METHYCOOL [Concomitant]
     Indication: BIPOLAR DISORDER
     Dosage: 500MCG THREE TIMES PER DAY
     Route: 048
  12. RIVOTRIL [Concomitant]
     Indication: BIPOLAR DISORDER
     Dosage: 1MG TWICE PER DAY
     Route: 048

REACTIONS (9)
  - Drug eruption [Recovered/Resolved]
  - Pyrexia [Unknown]
  - Rash [Recovering/Resolving]
  - Conjunctival hyperaemia [Unknown]
  - Lip erosion [Unknown]
  - Erythema [Unknown]
  - Enanthema [Recovering/Resolving]
  - Eosinophil count increased [Unknown]
  - Malaise [Unknown]
